FAERS Safety Report 6196640-2 (Version None)
Quarter: 2009Q2

REPORT INFORMATION
  Report Type: 
  Country: None (occurrence: None)
  Receive Date: 20090520
  Receipt Date: 20090511
  Transmission Date: 20091009
  Serious: Yes (Death, Hospitalization)
  Sender: FDA-Public Use
  Company Number: A0783512A

PATIENT
  Sex: Female

DRUGS (2)
  1. PAXIL [Suspect]
     Indication: FAMILY STRESS
     Route: 048
  2. NO CONCURRENT MEDICATION [Concomitant]

REACTIONS (19)
  - ABASIA [None]
  - ABNORMAL BEHAVIOUR [None]
  - ACTIVITIES OF DAILY LIVING IMPAIRED [None]
  - COMPULSIVE SHOPPING [None]
  - DIZZINESS [None]
  - DYSPHONIA [None]
  - FALL [None]
  - HEADACHE [None]
  - HIP FRACTURE [None]
  - LIVER FUNCTION TEST ABNORMAL [None]
  - MANIA [None]
  - MULTI-ORGAN FAILURE [None]
  - NEGATIVISM [None]
  - READING DISORDER [None]
  - SEDATION [None]
  - VERBAL ABUSE [None]
  - VISUAL IMPAIRMENT [None]
  - WITHDRAWAL SYNDROME [None]
  - YELLOW SKIN [None]
